FAERS Safety Report 20492575 (Version 1)
Quarter: 2022Q1

REPORT INFORMATION
  Report Type: Spontaneous
  Country: ES (occurrence: ES)
  Receive Date: 20220219
  Receipt Date: 20220219
  Transmission Date: 20220423
  Serious: Yes (Other)
  Sender: FDA-Public Use
  Company Number: ES-AEMPS-1107117

PATIENT
  Age: 58 Year
  Sex: Female
  Weight: 54 kg

DRUGS (2)
  1. ALENDRONIC ACID [Suspect]
     Active Substance: ALENDRONIC ACID
     Indication: Fracture
     Dosage: 70 MILLIGRAM, EVERY WEEK
     Route: 048
     Dates: start: 2017, end: 20211108
  2. VITAMIN D [Concomitant]
     Active Substance: VITAMIN D NOS
     Indication: Osteoporosis
     Dosage: UNK
     Route: 048
     Dates: start: 2017

REACTIONS (1)
  - Osteonecrosis of external auditory canal [Unknown]

NARRATIVE: CASE EVENT DATE: 20211108
